FAERS Safety Report 12691742 (Version 5)
Quarter: 2017Q2

REPORT INFORMATION
  Report Type: Report from Study
  Country: US (occurrence: US)
  Receive Date: 20160826
  Receipt Date: 20170421
  Transmission Date: 20170830
  Serious: Yes (Life-Threatening, Other)
  Sender: FDA-Public Use
  Company Number: US-TEVA-687420USA

PATIENT
  Age: 67 Year
  Sex: Male

DRUGS (2)
  1. CLOZAPINE. [Suspect]
     Active Substance: CLOZAPINE
     Indication: SCHIZOPHRENIA
     Route: 048
  2. CLOZAPINE. [Suspect]
     Active Substance: CLOZAPINE
     Route: 048

REACTIONS (2)
  - Neoplasm malignant [Not Recovered/Not Resolved]
  - Granulocytopenia [Recovering/Resolving]

NARRATIVE: CASE EVENT DATE: 20161011
